FAERS Safety Report 21223223 (Version 1)
Quarter: 2022Q3

REPORT INFORMATION
  Report Type: Spontaneous
  Country: US (occurrence: None)
  Receive Date: 20220816
  Receipt Date: 20220816
  Transmission Date: 20221027
  Serious: No
  Sender: FDA-Public Use
  Company Number: None

PATIENT
  Age: 83 Year
  Sex: Male
  Weight: 95.25 kg

DRUGS (1)
  1. CILGAVIMAB\TIXAGEVIMAB [Suspect]
     Active Substance: CILGAVIMAB\TIXAGEVIMAB
     Indication: Immunisation
     Dosage: 300 MG ONCE IM
     Route: 030
     Dates: start: 20220603, end: 20220603

REACTIONS (5)
  - Restless legs syndrome [None]
  - Nausea [None]
  - Hyperhidrosis [None]
  - Injection site urticaria [None]
  - Post procedural complication [None]

NARRATIVE: CASE EVENT DATE: 20220603
